FAERS Safety Report 11245692 (Version 2)
Quarter: 2015Q4

REPORT INFORMATION
  Report Type: Spontaneous
  Country: US (occurrence: US)
  Receive Date: 20150707
  Receipt Date: 20151106
  Transmission Date: 20160304
  Serious: Yes (Hospitalization, Other)
  Sender: FDA-Public Use
  Company Number: US-GLAXOSMITHKLINE-US2015GSK097561

PATIENT
  Age: 66 Year
  Sex: Male

DRUGS (5)
  1. DALIRESP [Suspect]
     Active Substance: ROFLUMILAST
  2. SPIRIVA [Suspect]
     Active Substance: TIOTROPIUM BROMIDE MONOHYDRATE
  3. LISINOPRIL. [Suspect]
     Active Substance: LISINOPRIL
  4. VENTOLIN HFA [Suspect]
     Active Substance: ALBUTEROL SULFATE
  5. SYMBICORT [Suspect]
     Active Substance: BUDESONIDE\FORMOTEROL FUMARATE DIHYDRATE

REACTIONS (5)
  - Continuous positive airway pressure [Unknown]
  - Oxygen supplementation [Unknown]
  - Disability [Unknown]
  - Chronic obstructive pulmonary disease [Unknown]
  - Hospitalisation [Unknown]

NARRATIVE: CASE EVENT DATE: 20140502
